FAERS Safety Report 9597153 (Version 3)
Quarter: 2013Q4

REPORT INFORMATION
  Report Type: Spontaneous
  Country: US (occurrence: US)
  Receive Date: 20131004
  Receipt Date: 20131211
  Transmission Date: 20140711
  Serious: Yes (Other)
  Sender: FDA-Public Use
  Company Number: US-RB-059015-13

PATIENT
  Age: 49 Year
  Sex: Female

DRUGS (4)
  1. SUBOXONE FILM [Suspect]
     Indication: DRUG DEPENDENCE
     Dosage: SUBOXONE FILM
     Route: 060
     Dates: start: 201305, end: 201308
  2. LITHIUM [Concomitant]
     Indication: AFFECTIVE DISORDER
     Dosage: DOSING DETAILS UNKNOWN
     Route: 048
     Dates: start: 2003
  3. CLONIDINE [Concomitant]
     Indication: ANXIETY
     Dosage: DOSING DETAILS UNKNOWN
     Route: 048
     Dates: start: 2003, end: 201308
  4. LORAZEPAM [Concomitant]
     Indication: ANXIETY
     Dosage: DOSING DETAILS UNKNOWN
     Route: 048
     Dates: start: 201308

REACTIONS (4)
  - Uterine disorder [Recovered/Resolved]
  - Haemorrhage [Recovered/Resolved]
  - Rectal fissure [Recovered/Resolved]
  - Pain [Recovered/Resolved]
